FAERS Safety Report 7353893-2 (Version None)
Quarter: 2011Q1

REPORT INFORMATION
  Report Type: 
  Country: None (occurrence: None)
  Receive Date: 20110315
  Receipt Date: 20101105
  Transmission Date: 20110831
  Serious: No
  Sender: FDA-Public Use
  Company Number: US-BAYER-201023566BCC

PATIENT
  Sex: Female
  Weight: 59.091 kg

DRUGS (2)
  1. CENTRUM SILVER [Concomitant]
  2. ASPIRIN [Suspect]
     Indication: ISCHAEMIC HEART DISEASE PROPHYLAXIS
     Dosage: 1 DF, QD
     Route: 048
     Dates: start: 20100701, end: 20101001

REACTIONS (1)
  - FLUSHING [None]
